FAERS Safety Report 16125875 (Version 14)
Quarter: 2021Q3

REPORT INFORMATION
  Report Type: Spontaneous
  Country: CA (occurrence: CA)
  Receive Date: 20190328
  Receipt Date: 20210828
  Transmission Date: 20211014
  Serious: Yes (Other)
  Sender: FDA-Public Use
  Company Number: CA-CELLTRION INC.-2016CA010745

PATIENT

DRUGS (33)
  1. INFLECTRA [Suspect]
     Active Substance: INFLIXIMAB-DYYB
     Dosage: 400 MG OR 5 MG/KG, EVERY 8 WEEKS
     Route: 042
     Dates: start: 20180215, end: 20180215
  2. INFLECTRA [Suspect]
     Active Substance: INFLIXIMAB-DYYB
     Dosage: 400 MG OR 5 MG/KG, EVERY 8 WEEKS
     Route: 042
     Dates: start: 20180607, end: 20180607
  3. INFLECTRA [Suspect]
     Active Substance: INFLIXIMAB-DYYB
     Dosage: 400 MG OR 5 MG/KG, EVERY 8 WEEKS
     Route: 042
     Dates: start: 20180926, end: 20180926
  4. INFLECTRA [Suspect]
     Active Substance: INFLIXIMAB-DYYB
     Dosage: 400 MG OR 5 MG/KG, EVERY 8 WEEKS
     Route: 042
     Dates: start: 20190522, end: 20190522
  5. INFLECTRA [Suspect]
     Active Substance: INFLIXIMAB-DYYB
     Dosage: 400 MG OR 5 MG/KG, EVERY 8 WEEKS
     Route: 042
     Dates: start: 20190911, end: 20190911
  6. INFLECTRA [Suspect]
     Active Substance: INFLIXIMAB-DYYB
     Dosage: 400 MG OR 5 MG/KG, EVERY 8 WEEKS
     Route: 042
     Dates: start: 20200102, end: 20200102
  7. INFLECTRA [Suspect]
     Active Substance: INFLIXIMAB-DYYB
     Dosage: 5 MG/KG, 0, 2, 6, THEN EVERY 8 WEEKS
     Route: 042
     Dates: start: 20210622
  8. INFLECTRA [Suspect]
     Active Substance: INFLIXIMAB-DYYB
     Dosage: 5 MG/KG, 0, 2, 6, THEN EVERY 8 WEEKS
     Route: 042
     Dates: start: 20210105
  9. INFLECTRA [Suspect]
     Active Substance: INFLIXIMAB-DYYB
     Dosage: 5 MG/KG, 0, 2, 6, THEN EVERY 8 WEEKS
     Route: 042
     Dates: start: 20210427
  10. DICLOFENAC [Concomitant]
     Active Substance: DICLOFENAC
     Dosage: 50 MG, 2X/DAY
     Route: 065
  11. INFLECTRA [Suspect]
     Active Substance: INFLIXIMAB-DYYB
     Dosage: 400 MG OR 5 MG/KG, EVERY 8 WEEKS
     Route: 042
     Dates: start: 20180412, end: 20180412
  12. INFLECTRA [Suspect]
     Active Substance: INFLIXIMAB-DYYB
     Dosage: 400 MG OR 5 MG/KG, EVERY 8 WEEKS
     Route: 042
  13. INFLECTRA [Suspect]
     Active Substance: INFLIXIMAB-DYYB
     Dosage: 400 MG OR 5 MG/KG, EVERY 8 WEEKS
     Route: 042
     Dates: start: 20190313, end: 20190313
  14. INFLECTRA [Suspect]
     Active Substance: INFLIXIMAB-DYYB
     Dosage: 400 MG OR 5 MG/KG, EVERY 8 WEEKS
     Route: 042
     Dates: start: 20200227, end: 20200227
  15. INFLECTRA [Suspect]
     Active Substance: INFLIXIMAB-DYYB
     Dosage: 400 MG OR 5 MG/KG, EVERY 8 WEEKS
     Route: 042
     Dates: start: 20200227, end: 20200227
  16. INFLECTRA [Suspect]
     Active Substance: INFLIXIMAB-DYYB
     Dosage: 400 MG OR 5 MG/KG, EVERY 8 WEEKS
     Route: 042
     Dates: start: 20200423
  17. INFLECTRA [Suspect]
     Active Substance: INFLIXIMAB-DYYB
     Dosage: 400 MG OR 5 MG/KG, EVERY 8 WEEKS
     Route: 042
     Dates: start: 20200618
  18. COVERSYL [Concomitant]
     Active Substance: PERINDOPRIL
     Dosage: UNK
     Route: 065
  19. INFLECTRA [Suspect]
     Active Substance: INFLIXIMAB-DYYB
     Dosage: 400 MG OR 5 MG/KG, EVERY 8 WEEKS
     Route: 042
     Dates: start: 20180802, end: 20180802
  20. INFLECTRA [Suspect]
     Active Substance: INFLIXIMAB-DYYB
     Dosage: 400 MG OR 5 MG/KG, EVERY 8 WEEKS
     Route: 042
     Dates: start: 20190717, end: 20190717
  21. INFLECTRA [Suspect]
     Active Substance: INFLIXIMAB-DYYB
     Dosage: 5 MG/KG, 0, 2, 6, THEN EVERY 8 WEEKS
     Route: 042
     Dates: start: 20201111
  22. INFLECTRA [Suspect]
     Active Substance: INFLIXIMAB-DYYB
     Dosage: 400 MG OR 5 MG/KG, EVERY 8 WEEKS
     Route: 042
     Dates: start: 20190115, end: 20190115
  23. INFLECTRA [Suspect]
     Active Substance: INFLIXIMAB-DYYB
     Dosage: 5 MG/KG, 0, 2, 6, THEN EVERY 8 WEEKS
     Route: 042
     Dates: start: 20210302
  24. SULFATE FERREUX [Concomitant]
     Active Substance: FERROUS SULFATE
     Dosage: UNK
     Route: 065
  25. INFLECTRA [Suspect]
     Active Substance: INFLIXIMAB-DYYB
     Indication: ANKYLOSING SPONDYLITIS
     Dosage: 400 MG OR 5 MG/KG, AT 0, 2, 6, THEN EVERY 8 WEEKS FOR 12 MONTHS
     Route: 042
     Dates: start: 20160425, end: 20160425
  26. INFLECTRA [Suspect]
     Active Substance: INFLIXIMAB-DYYB
     Dosage: 400 MG OR 5 MG/KG, EVERY 8 WEEKS
     Route: 042
     Dates: start: 20181120, end: 20181120
  27. INFLECTRA [Suspect]
     Active Substance: INFLIXIMAB-DYYB
     Dosage: 5 MG/KG, 0, 2, 6, THEN EVERY 8 WEEKS
     Route: 042
     Dates: start: 20210817
  28. PANTOPRAZOLE [Concomitant]
     Active Substance: PANTOPRAZOLE
     Dosage: UNK
     Route: 065
  29. INFLECTRA [Suspect]
     Active Substance: INFLIXIMAB-DYYB
     Dosage: 5 MG/KG, AT 0, 2, 6, THEN EVERY 8 WEEKS FOR 12 MONTHS
     Route: 042
     Dates: start: 20160425
  30. INFLECTRA [Suspect]
     Active Substance: INFLIXIMAB-DYYB
     Dosage: 400 MG OR 5 MG/KG, EVERY 8 WEEKS
     Route: 042
     Dates: start: 20191106, end: 20191106
  31. INFLECTRA [Suspect]
     Active Substance: INFLIXIMAB-DYYB
     Dosage: 400 MG OR 5 MG/KG, EVERY 8 WEEKS
     Route: 042
     Dates: start: 20200916
  32. IBUPROFEN. [Concomitant]
     Active Substance: IBUPROFEN
     Indication: ARTHRALGIA
     Dosage: UNK
  33. VITAMIN D [Concomitant]
     Active Substance: VITAMIN D NOS
     Dosage: UNK
     Route: 065

REACTIONS (15)
  - Skin cancer [Unknown]
  - Off label use [Unknown]
  - Pyrexia [Recovered/Resolved]
  - Gastrooesophageal reflux disease [Unknown]
  - Intentional product use issue [Unknown]
  - Fatigue [Not Recovered/Not Resolved]
  - Blood pressure fluctuation [Not Recovered/Not Resolved]
  - Influenza [Not Recovered/Not Resolved]
  - Weight decreased [Unknown]
  - Malaise [Unknown]
  - Oropharyngeal pain [Not Recovered/Not Resolved]
  - Blood pressure increased [Not Recovered/Not Resolved]
  - Dyspnoea [Not Recovered/Not Resolved]
  - Therapeutic product effect decreased [Unknown]
  - Cough [Not Recovered/Not Resolved]

NARRATIVE: CASE EVENT DATE: 201604
